FAERS Safety Report 18661267 (Version 2)
Quarter: 2021Q1

REPORT INFORMATION
  Report Type: Report from Study
  Country: MX (occurrence: MX)
  Receive Date: 20201224
  Receipt Date: 20210107
  Transmission Date: 20210419
  Serious: No
  Sender: FDA-Public Use
  Company Number: NVSC2020MX339081

PATIENT
  Sex: Female
  Weight: 73 kg

DRUGS (10)
  1. LANTUS [Concomitant]
     Active Substance: INSULIN GLARGINE
     Indication: DIABETES MELLITUS
     Dosage: 25 UI, QD (SEVERAL YEARS AGOE)
     Route: 059
  2. SODIUM HYALURONATE [Concomitant]
     Active Substance: HYALURONATE SODIUM
     Indication: EYE LUBRICATION THERAPY
     Dosage: 1 DF, Q6H
     Route: 047
     Dates: start: 20201214
  3. MICCIL [Concomitant]
     Indication: FLUID RETENTION
     Dosage: 1 DF, QD
     Route: 048
     Dates: start: 2020
  4. NIFEDIPINE. [Concomitant]
     Active Substance: NIFEDIPINE
     Indication: HYPERTENSION
     Dosage: 1 DF (5 MG), QD (SEVERAL YEARS AGO)
     Route: 048
     Dates: end: 202010
  5. EXFORGE [Suspect]
     Active Substance: AMLODIPINE BESYLATE\VALSARTAN
     Indication: HYPERTENSION
  6. EXFORGE [Suspect]
     Active Substance: AMLODIPINE BESYLATE\VALSARTAN
     Indication: BLOOD PRESSURE ABNORMAL
     Dosage: 1 DF (320/5 MG), QD
     Route: 048
     Dates: start: 202010
  7. XIGDUO XR [Concomitant]
     Active Substance: DAPAGLIFLOZIN PROPANEDIOL\METFORMIN HYDROCHLORIDE
     Indication: DIABETES MELLITUS
     Dosage: 1 DF (10/1000 MG), QD
     Route: 048
     Dates: start: 202010
  8. PRAZOSINE [Concomitant]
     Active Substance: PRAZOSIN HYDROCHLORIDE
     Indication: HYPERTENSION
     Dosage: 1 DF, QD (SEVERAL YEARS AGO)
     Route: 048
     Dates: end: 202010
  9. ACULAR ^ALLERGAN^ [Concomitant]
     Indication: EYE PAIN
     Dosage: 1 DF, Q6H
     Route: 047
     Dates: start: 202010, end: 202011
  10. ACULAR ^ALLERGAN^ [Concomitant]
     Dosage: 1 DF, Q12H
     Route: 047
     Dates: start: 202011

REACTIONS (1)
  - Eye disorder [Unknown]
